FAERS Safety Report 7469442-4 (Version None)
Quarter: 2011Q2

REPORT INFORMATION
  Report Type: 
  Country: None (occurrence: None)
  Receive Date: 20110510
  Receipt Date: 20110426
  Transmission Date: 20111010
  Serious: Yes (Other)
  Sender: FDA-Public Use
  Company Number: US-CELGENEUS-163-20785-11043472

PATIENT
  Sex: Male

DRUGS (5)
  1. DEXAMETHASONE [Concomitant]
     Route: 065
     Dates: start: 20040908
  2. THALOMID [Suspect]
     Indication: MULTIPLE MYELOMA
     Dosage: 200 MILLIGRAM
     Route: 048
     Dates: start: 20040601, end: 20040801
  3. VELCADE [Concomitant]
     Route: 065
     Dates: end: 20100917
  4. THALOMID [Suspect]
     Dosage: 50 MILLIGRAM
     Route: 048
     Dates: start: 20040801, end: 20040101
  5. THALOMID [Suspect]
     Dosage: 50 MILLIGRAM
     Route: 048
     Dates: start: 20060801, end: 20080101

REACTIONS (1)
  - NASOPHARYNGEAL CANCER [None]
